FAERS Safety Report 21406784 (Version 2)
Quarter: 2022Q4

REPORT INFORMATION
  Report Type: Report from Study
  Country: EG (occurrence: EG)
  Receive Date: 20221004
  Receipt Date: 20221010
  Transmission Date: 20230113
  Serious: Yes (Other)
  Sender: FDA-Public Use
  Company Number: EG-NOVARTISPH-NVSC2022EG222455

PATIENT
  Sex: Male

DRUGS (5)
  1. GILENYA [Suspect]
     Active Substance: FINGOLIMOD HYDROCHLORIDE
     Indication: Multiple sclerosis
     Dosage: 1 DOSAGE FORM, QD
     Route: 048
     Dates: start: 2018, end: 2019
  2. OMEGA-3 ACIDS [Concomitant]
     Active Substance: OMEGA-3 FATTY ACIDS
     Indication: Supplementation therapy
     Dosage: 1 DOSAGE FORM, QD (EXACT DATE OF START AND END IS UNKNOWN BY THE PATIENT)
     Route: 065
  3. DEVAROL [Concomitant]
     Indication: Vitamin supplementation
     Dosage: (1 AMPOULE EVERY MONTH OR EVERY 815 DAYS OR EVERY 2 MONTHS, ALTERNATIVELY WITH DRUG ONE ALPHA AND BO
     Route: 065
     Dates: start: 2017
  4. ALFACALCIDOL [Concomitant]
     Active Substance: ALFACALCIDOL
     Indication: Vitamin supplementation
     Dosage: 1 DOSAGE FORM, QD, (ALTERNATIVELY WITH DRUG DEVAROL AND BONECARE)
     Route: 065
     Dates: start: 2017
  5. BONECARE [Concomitant]
     Indication: Vitamin supplementation
     Dosage: 1 DOSAGE FORM, QD, (ALTERNATIVELY WITH DRUG ONE ALPHA AND DEVAROL)
     Route: 065
     Dates: start: 2017

REACTIONS (6)
  - Blindness unilateral [Not Recovered/Not Resolved]
  - Visual impairment [Not Recovered/Not Resolved]
  - Multiple sclerosis relapse [Not Recovered/Not Resolved]
  - Heart rate increased [Not Recovered/Not Resolved]
  - Product dose omission issue [Unknown]
  - Drug ineffective [Unknown]

NARRATIVE: CASE EVENT DATE: 20180101
